FAERS Safety Report 10169571 (Version 1)
Quarter: 2014Q2

REPORT INFORMATION
  Report Type: Spontaneous
  Country: CN (occurrence: CN)
  Receive Date: 20140513
  Receipt Date: 20140513
  Transmission Date: 20141212
  Serious: Yes (Other)
  Sender: FDA-Public Use
  Company Number: CN-BAXTER-2014BAX023163

PATIENT
  Age: 5 Year
  Sex: Female
  Weight: 16 kg

DRUGS (6)
  1. 20% GLUCOSE  INJECTION 250ML [Suspect]
     Indication: MEDICATION DILUTION
     Route: 041
  2. 20% GLUCOSE  INJECTION 250ML [Suspect]
     Route: 041
     Dates: start: 20130813
  3. BROMHEXINE HYDROCHLORIDE [Suspect]
     Indication: BRONCHOPNEUMONIA
     Route: 042
  4. AZITHROMYCIN [Suspect]
     Indication: BRONCHOPNEUMONIA
     Route: 042
  5. AZITHROMYCIN [Suspect]
     Route: 042
     Dates: start: 20130813
  6. VITAMIN C [Concomitant]
     Indication: PRODUCT USED FOR UNKNOWN INDICATION

REACTIONS (1)
  - Anaphylactoid reaction [Recovered/Resolved]
